FAERS Safety Report 17444364 (Version 1)
Quarter: 2020Q1

REPORT INFORMATION
  Report Type: Spontaneous
  Country: US (occurrence: US)
  Receive Date: 20200221
  Receipt Date: 20200221
  Transmission Date: 20200409
  Serious: No
  Sender: FDA-Public Use
  Company Number: None

PATIENT
  Age: 29 Year
  Sex: Female

DRUGS (1)
  1. DEXTROAMPHETAMINE. [Suspect]
     Active Substance: DEXTROAMPHETAMINE
     Indication: ATTENTION DEFICIT/HYPERACTIVITY DISORDER
     Dates: start: 20200220, end: 20200221

REACTIONS (8)
  - Anger [None]
  - Somnolence [None]
  - Feeling abnormal [None]
  - Depression [None]
  - Irritability [None]
  - Panic attack [None]
  - Crying [None]
  - Suicidal ideation [None]

NARRATIVE: CASE EVENT DATE: 20200220
